FAERS Safety Report 6999998-7 (Version None)
Quarter: 2010Q3

REPORT INFORMATION
  Report Type: 
  Country: None (occurrence: None)
  Receive Date: 20100920
  Receipt Date: 20080228
  Transmission Date: 20110219
  Serious: Yes (Hospitalization)
  Sender: FDA-Public Use
  Company Number: US-ASTRAZENECA-2007UW27334

PATIENT
  Age: 35 Year
  Sex: Female

DRUGS (9)
  1. SEROQUEL [Suspect]
     Indication: DEPRESSION
     Dosage: VARIOUS DOSES INCLUDING BUT NOT LIMITED TO 25 MG, 100 MG, AND 200 MG
     Dates: start: 20041201, end: 20051001
  2. SEROQUEL [Suspect]
     Dosage: 25-200 MG
     Route: 048
     Dates: start: 20041215, end: 20051107
  3. LEXAPRO [Concomitant]
     Route: 048
     Dates: start: 20040814
  4. TRAZODONE HCL [Concomitant]
     Dates: start: 20040814
  5. IBUPROFEN [Concomitant]
     Dosage: 600-800 MG
     Dates: start: 20050201
  6. LANTUS [Concomitant]
     Dosage: 35 UNITS AT BEDTIME
     Dates: start: 20051107
  7. NOVOLOG [Concomitant]
     Dosage: 15-45 UNITS
     Route: 058
     Dates: start: 20051107
  8. KLONOPIN [Concomitant]
     Indication: ANXIETY
     Dates: start: 20051107
  9. TYLENOL [Concomitant]
     Dates: start: 20051107

REACTIONS (5)
  - BLOOD GLUCOSE INCREASED [None]
  - DIABETES MELLITUS [None]
  - DIABETIC KETOACIDOSIS [None]
  - FURUNCLE [None]
  - GESTATIONAL DIABETES [None]
